FAERS Safety Report 8278222-1 (Version None)
Quarter: 2012Q2

REPORT INFORMATION
  Report Type: 
  Country: None (occurrence: None)
  Receive Date: 20120412
  Receipt Date: 20120131
  Transmission Date: 20120825
  Serious: No
  Sender: FDA-Public Use
  Company Number: US-ASTRAZENECA-2012SE06560

PATIENT
  Age: 74 Year
  Sex: Female
  Weight: 72.6 kg

DRUGS (7)
  1. DIOVAN [Concomitant]
  2. LOVEBID [Concomitant]
  3. CARVEDILOL [Concomitant]
  4. NEXIUM [Suspect]
     Indication: GASTROOESOPHAGEAL REFLUX DISEASE
     Route: 048
  5. K-TAB [Concomitant]
  6. SYNTHROID [Concomitant]
  7. PRAVASTATIN [Concomitant]

REACTIONS (2)
  - DYSPHONIA [None]
  - OFF LABEL USE [None]
